FAERS Safety Report 19642046 (Version 1)
Quarter: 2021Q3

REPORT INFORMATION
  Report Type: Spontaneous
  Country: US (occurrence: US)
  Receive Date: 20210730
  Receipt Date: 20210730
  Transmission Date: 20211014
  Serious: No
  Sender: FDA-Public Use
  Company Number: US-GE HEALTHCARE LIFE SCIENCES-2021CSU003421

PATIENT
  Sex: Male

DRUGS (3)
  1. DATSCAN [Suspect]
     Active Substance: IODINE\IOFLUPANE I-123
     Indication: PRODUCT USED FOR UNKNOWN INDICATION
  2. DATSCAN [Suspect]
     Active Substance: IODINE\IOFLUPANE I-123
     Indication: COMPUTERISED TOMOGRAM HEAD
     Dosage: UNK, SINGLE
     Route: 065
     Dates: start: 20210706, end: 20210706
  3. IODINE. [Concomitant]
     Active Substance: IODINE
     Dosage: UNK
     Dates: start: 20210706, end: 20210706

REACTIONS (4)
  - Injection site pain [Recovered/Resolved]
  - Radioisotope scan abnormal [Recovered/Resolved]
  - Product administration error [Recovered/Resolved]
  - Injection site erythema [Recovered/Resolved]

NARRATIVE: CASE EVENT DATE: 20210706
